FAERS Safety Report 9177544 (Version 1)
Quarter: 2013Q1

REPORT INFORMATION
  Report Type: Spontaneous
  Country: US (occurrence: US)
  Receive Date: 20130321
  Receipt Date: 20130321
  Transmission Date: 20140127
  Serious: Yes (Hospitalization)
  Sender: FDA-Public Use
  Company Number: US-009507513-1303USA008845

PATIENT
  Sex: Female

DRUGS (12)
  1. VICTRELIS [Suspect]
     Indication: CHRONIC HEPATITIS C
     Dosage: 4 DF, TID
     Route: 048
     Dates: start: 20111004
  2. PEGINTERFERON ALFA-2A [Suspect]
     Indication: CHRONIC HEPATITIS C
     Dosage: 180 MICROGRAM, QW
     Route: 058
     Dates: start: 20111004
  3. RIBASPHERE [Suspect]
     Indication: CHRONIC HEPATITIS C
     Dosage: 1000 MG IN DIVIDED DOSES, QD
     Route: 048
     Dates: start: 20111004
  4. TELAPREVIR [Suspect]
     Indication: CHRONIC HEPATITIS C
     Dosage: 1 DF, TID
     Route: 048
     Dates: start: 20111004
  5. METFORMIN HYDROCHLORIDE [Concomitant]
  6. PAROXETINE [Concomitant]
  7. BACLOFEN [Concomitant]
  8. ENALAPRIL MALEATE [Concomitant]
  9. ONDANSETRON [Concomitant]
  10. PREMPRO [Concomitant]
  11. DEXILANT [Concomitant]
  12. MELOXICAM [Concomitant]

REACTIONS (6)
  - Dehydration [Unknown]
  - Vomiting [Unknown]
  - Unevaluable event [Unknown]
  - Decreased appetite [Unknown]
  - Weight decreased [Unknown]
  - Pruritus [Unknown]
